FAERS Safety Report 6148708-4 (Version None)
Quarter: 2009Q2

REPORT INFORMATION
  Report Type: 
  Country: None (occurrence: None)
  Receive Date: 20090406
  Receipt Date: 20090406
  Transmission Date: 20091009
  Serious: Yes (Life-Threatening, Hospitalization)
  Sender: FDA-Public Use
  Company Number: None

PATIENT
  Age: 17 Year
  Sex: Male

DRUGS (4)
  1. PROACTIV (ACNE MANAGEMENT SYSTEM) [Suspect]
     Dosage: ONCE A DAY
  2. RENEWING CLEANSER [Concomitant]
  3. REVITALIZING TONER [Concomitant]
  4. REPAIRING LOTION [Concomitant]

REACTIONS (5)
  - CHEST DISCOMFORT [None]
  - DIZZINESS [None]
  - NAUSEA [None]
  - PARAESTHESIA [None]
  - RESPIRATORY DISTRESS [None]
